FAERS Safety Report 5640032-9 (Version None)
Quarter: 2008Q1

REPORT INFORMATION
  Report Type: 
  Country: None (occurrence: None)
  Receive Date: 20080227
  Receipt Date: 20080211
  Transmission Date: 20080703
  Serious: No
  Sender: FDA-Public Use
  Company Number: US-BAYER-200813829NA

PATIENT
  Age: 27 Year
  Sex: Female
  Weight: 57 kg

DRUGS (2)
  1. YAZ [Suspect]
     Indication: CONTRACEPTION
     Route: 048
     Dates: start: 20080204, end: 20080206
  2. LEXAPRO [Concomitant]

REACTIONS (4)
  - EYE SWELLING [None]
  - RASH GENERALISED [None]
  - RASH PAPULAR [None]
  - SKIN HAEMORRHAGE [None]
